FAERS Safety Report 17266238 (Version 1)
Quarter: 2020Q1

REPORT INFORMATION
  Report Type: Spontaneous
  Country: US (occurrence: US)
  Receive Date: 20200114
  Receipt Date: 20200114
  Transmission Date: 20200409
  Serious: Yes (Other)
  Sender: FDA-Public Use
  Company Number: US-TEVA-2020-US-1168142

PATIENT
  Age: 54 Year
  Sex: Male

DRUGS (18)
  1. AUSTEDO [Suspect]
     Active Substance: DEUTETRABENAZINE
     Indication: PARKINSON^S DISEASE
     Route: 048
     Dates: start: 20191224
  2. APAP [Concomitant]
     Active Substance: ACETAMINOPHEN
  3. CLONAZEPAM 2 MG [Concomitant]
     Active Substance: CLONAZEPAM
  4. IBUPROFEN 200 MG [Concomitant]
     Active Substance: IBUPROFEN
  5. GABAPENTIN 800 MG [Concomitant]
     Active Substance: GABAPENTIN
  6. AUSTEDO [Suspect]
     Active Substance: DEUTETRABENAZINE
     Route: 048
     Dates: start: 20200106
  7. QUETIAPINE 400 MG [Concomitant]
     Active Substance: QUETIAPINE
  8. ATORVASTATIN 20 MG [Concomitant]
     Active Substance: ATORVASTATIN
  9. FLUOXETINE [Concomitant]
     Active Substance: FLUOXETINE HYDROCHLORIDE
  10. HYDROXYZINE 25 MG [Concomitant]
  11. CARBIDOPA/LEVODOPA 25/100 MG [Concomitant]
     Dosage: 25/100 MG
  12. TRAMADOL 50 MG [Concomitant]
     Active Substance: TRAMADOL
  13. TRIPHEXYPHENIDYL 2 MG [Concomitant]
  14. CARBIDOPA/LEVODOPA ER 50-100 MG [Concomitant]
     Dosage: 50/200 MG
  15. QUETIAPINE 100 MG [Concomitant]
     Active Substance: QUETIAPINE
  16. VENLAFAXINE [Concomitant]
     Active Substance: VENLAFAXINE HYDROCHLORIDE
  17. AUSTEDO [Suspect]
     Active Substance: DEUTETRABENAZINE
     Dosage: 9 MILLIGRAM DAILY;
     Route: 048
  18. FLUOXETINE [Concomitant]
     Active Substance: FLUOXETINE HYDROCHLORIDE

REACTIONS (4)
  - Vomiting [Unknown]
  - Off label use [Unknown]
  - Nausea [Unknown]
  - Depression [Unknown]
